FAERS Safety Report 8268204-8 (Version None)
Quarter: 2012Q1

REPORT INFORMATION
  Report Type: 
  Country: None (occurrence: None)
  Receive Date: 20120327
  Receipt Date: 20100414
  Transmission Date: 20120608
  Serious: Yes (Other)
  Sender: FDA-Public Use
  Company Number: PHHY2010US23765

PATIENT
  Sex: Female

DRUGS (8)
  1. GLEEVEC [Suspect]
     Indication: GASTROINTESTINAL STROMAL TUMOUR
     Dosage: 800 MG, 400 MG
     Dates: start: 20020101
  2. VITAMIN D [Concomitant]
  3. PRILOSAC COENZYME Q10 [Concomitant]
  4. CENTRUM SILVER (ASCORBIC ACID, CALCIUM, MINERALS NOS, RETINOL, TOCOPHE [Concomitant]
  5. LUTEIN (XANTOFYL) [Concomitant]
  6. VITAMIN B NOS (VITAMIN B NOS) [Concomitant]
  7. MAGENSIUM (MAGNESIUM CARBONATE) [Concomitant]
  8. CALCIUM CARBONATE [Concomitant]

REACTIONS (2)
  - HAEMATOCHEZIA [None]
  - GASTROINTESTINAL HAEMORRHAGE [None]
